FAERS Safety Report 5968415-8 (Version None)
Quarter: 2008Q4

REPORT INFORMATION
  Report Type: 
  Country: None (occurrence: None)
  Receive Date: 20081126
  Receipt Date: 20081120
  Transmission Date: 20090506
  Serious: Yes (Other)
  Sender: FDA-Public Use
  Company Number: US-ASTRAZENECA-2008UW26046

PATIENT
  Age: 68 Year
  Sex: Female

DRUGS (7)
  1. ARIMIDEX [Suspect]
     Indication: BREAST CANCER
     Route: 048
  2. SYNTHROID [Concomitant]
  3. LIPITOR [Concomitant]
  4. COZAAR [Concomitant]
  5. VOLTAREN [Concomitant]
     Indication: ARTHRALGIA
  6. IBUPROFEN TABLETS [Concomitant]
  7. ALEVE [Concomitant]
     Dosage: PERIODICALLY

REACTIONS (6)
  - ARTHRALGIA [None]
  - DRUG INEFFECTIVE [None]
  - GAIT DISTURBANCE [None]
  - HYPERTENSION [None]
  - JOINT INJURY [None]
  - OSTEOPENIA [None]
